FAERS Safety Report 9716619 (Version 1)
Quarter: 2013Q4

REPORT INFORMATION
  Report Type: Spontaneous
  Country: US (occurrence: US)
  Receive Date: 20131127
  Receipt Date: 20131127
  Transmission Date: 20140711
  Serious: No
  Sender: FDA-Public Use
  Company Number: US-PFIZER INC-2013334898

PATIENT
  Age: 37 Year
  Sex: Female

DRUGS (1)
  1. ADVIL PM [Suspect]
     Indication: SLEEP DISORDER
     Dosage: 200/38 MG, AS NEEDED
     Route: 048
     Dates: start: 201310, end: 201310

REACTIONS (5)
  - Constipation [Unknown]
  - Feeling of relaxation [Unknown]
  - Bowel movement irregularity [Unknown]
  - Fear [Unknown]
  - Discomfort [Unknown]
